FAERS Safety Report 11492515 (Version 1)
Quarter: 2015Q3

REPORT INFORMATION
  Report Type: Spontaneous
  Country: US (occurrence: None)
  Receive Date: 20150910
  Receipt Date: 20150910
  Transmission Date: 20151125
  Serious: Yes (Disabling)
  Sender: FDA-Public Use
  Company Number: None

PATIENT
  Age: 78 Year
  Sex: Female
  Weight: 95.26 kg

DRUGS (4)
  1. LASIX [Concomitant]
     Active Substance: FUROSEMIDE
  2. ASPRIN [Concomitant]
     Active Substance: ASPIRIN
  3. GABAPENTIN 300 MG CAPSULES [Suspect]
     Active Substance: GABAPENTIN
     Indication: CHRONIC DISEASE
     Dosage: PILL 1 - 2X A DAY TWICE DAILY FOR 30 DAYS BY MOUTH
     Route: 048
     Dates: start: 20150706, end: 20150724
  4. GABAPENTIN 300 MG CAPSULES [Suspect]
     Active Substance: GABAPENTIN
     Indication: BACK PAIN
     Dosage: PILL 1 - 2X A DAY TWICE DAILY FOR 30 DAYS BY MOUTH
     Route: 048
     Dates: start: 20150706, end: 20150724

REACTIONS (5)
  - Oedema peripheral [None]
  - Weight increased [None]
  - Dyspnoea [None]
  - Fluid retention [None]
  - Chest pain [None]

NARRATIVE: CASE EVENT DATE: 20150724
